FAERS Safety Report 6097986-9 (Version None)
Quarter: 2009Q1

REPORT INFORMATION
  Report Type: 
  Country: None (occurrence: None)
  Receive Date: 20090227
  Receipt Date: 20090216
  Transmission Date: 20090719
  Serious: Yes (Other)
  Sender: FDA-Public Use
  Company Number: LK-PFIZER INC-2009170730

PATIENT
  Age: 53 Year
  Sex: Female

DRUGS (2)
  1. SERTRALINE HCL [Suspect]
     Indication: DEPRESSION
     Dosage: 50 MG
  2. HERBAL PREPARATION [Interacting]
     Indication: BACK PAIN

REACTIONS (3)
  - DEPRESSION [None]
  - DRUG INTERACTION [None]
  - SUICIDE ATTEMPT [None]
